FAERS Safety Report 8225600-2 (Version None)
Quarter: 2012Q1

REPORT INFORMATION
  Report Type: 
  Country: None (occurrence: None)
  Receive Date: 20120321
  Receipt Date: 20120314
  Transmission Date: 20120608
  Serious: No
  Sender: FDA-Public Use
  Company Number: CA-JNJFOC-20120308106

PATIENT
  Sex: Female
  Weight: 94 kg

DRUGS (5)
  1. REMICADE [Suspect]
     Indication: CROHN'S DISEASE
     Route: 042
     Dates: start: 20120118
  2. CELEXA [Concomitant]
     Route: 065
  3. IRON [Concomitant]
     Route: 065
  4. IMOVANE [Concomitant]
     Route: 065
  5. REMICADE [Suspect]
     Route: 042
     Dates: start: 20070517

REACTIONS (1)
  - VULVOVAGINAL MYCOTIC INFECTION [None]
